FAERS Safety Report 8906949 (Version 1)
Quarter: 2012Q4

REPORT INFORMATION
  Report Type: 
  Country: US (occurrence: US)
  Receive Date: 20121113
  Receipt Date: 20121113
  Transmission Date: 20130627
  Serious: No
  Sender: FDA-Public Use
  Company Number: US-AMGEN-USASP2012010846

PATIENT
  Sex: Male

DRUGS (3)
  1. ENBREL [Suspect]
     Indication: PSORIASIS
     Dosage: 50 mg, qwk
     Dates: start: 201001, end: 201201
  2. PROTOPIC [Concomitant]
  3. CLOBEX                             /00337102/ [Concomitant]

REACTIONS (3)
  - Headache [Recovered/Resolved]
  - Psoriasis [Recovering/Resolving]
  - Drug ineffective [Unknown]
